FAERS Safety Report 7466501-7 (Version None)
Quarter: 2011Q2

REPORT INFORMATION
  Report Type: 
  Country: None (occurrence: None)
  Receive Date: 20110509
  Receipt Date: 20100823
  Transmission Date: 20111010
  Serious: No
  Sender: FDA-Public Use
  Company Number: US-ALEXION-A201001053

PATIENT

DRUGS (5)
  1. DILAUDID [Concomitant]
     Indication: PREMEDICATION
     Dosage: UNK
  2. ATIVAN [Concomitant]
     Dosage: 1 MG, TID
     Route: 048
  3. COMPAZINE [Concomitant]
     Dosage: 5 MG, BID
     Route: 048
  4. SOLIRIS [Suspect]
     Indication: PAROXYSMAL NOCTURNAL HAEMOGLOBINURIA
     Dosage: 600 MG, QW
     Route: 042
     Dates: start: 20071026, end: 20071123
  5. SOLIRIS [Suspect]
     Dosage: 900 MG, Q2W
     Route: 042
     Dates: start: 20071207

REACTIONS (2)
  - PAIN [None]
  - CONDITION AGGRAVATED [None]
